FAERS Safety Report 18503631 (Version 2)
Quarter: 2020Q4

REPORT INFORMATION
  Report Type: Report from Study
  Country: US (occurrence: US)
  Receive Date: 20201114
  Receipt Date: 20201125
  Transmission Date: 20210114
  Serious: Yes (Other)
  Sender: FDA-Public Use
  Company Number: US-JNJFOC-20201011635

PATIENT
  Age: 52 Year
  Sex: Male

DRUGS (5)
  1. SIPULEUCEL-T [Suspect]
     Active Substance: SIPULEUCEL-T
     Indication: PROSTATE CANCER
     Route: 065
     Dates: start: 20191001, end: 20200101
  2. XGEVA [Concomitant]
     Active Substance: DENOSUMAB
     Indication: NUTRITIONAL SUPPLEMENTATION
  3. ELIGARD [Concomitant]
     Active Substance: LEUPROLIDE ACETATE
     Indication: PRODUCT USED FOR UNKNOWN INDICATION
     Route: 065
  4. ZYTIGA [Suspect]
     Active Substance: ABIRATERONE ACETATE
     Indication: PROSTATE CANCER
     Route: 048
     Dates: start: 20181001
  5. LEUPROLIDE ACETATE. [Suspect]
     Active Substance: LEUPROLIDE ACETATE
     Indication: PROSTATE CANCER METASTATIC
     Dosage: DEPOT. DOSE- 1 UNKNOWN, 1 I - 2
     Route: 065
     Dates: start: 20181001, end: 20181001

REACTIONS (11)
  - Hot flush [Not Recovered/Not Resolved]
  - Metastases to bone [Unknown]
  - Sexual dysfunction [Unknown]
  - Drug ineffective [Unknown]
  - Injection site pain [Unknown]
  - Joint neoplasm [Unknown]
  - COVID-19 [Recovered/Resolved]
  - Alopecia [Unknown]
  - Prostatic specific antigen increased [Unknown]
  - Urinary tract obstruction [Unknown]
  - Muscular weakness [Recovering/Resolving]

NARRATIVE: CASE EVENT DATE: 2020
